FAERS Safety Report 12716959 (Version 2)
Quarter: 2016Q3

REPORT INFORMATION
  Report Type: Spontaneous
  Country: JP (occurrence: JP)
  Receive Date: 20160906
  Receipt Date: 20160908
  Transmission Date: 20161109
  Serious: Yes (Other)
  Sender: FDA-Public Use
  Company Number: JP-PFIZER INC-2016417455

PATIENT

DRUGS (1)
  1. SOMAVERT [Suspect]
     Active Substance: PEGVISOMANT
     Dosage: UNK
     Dates: start: 20160509, end: 201606

REACTIONS (3)
  - Condition aggravated [Unknown]
  - Renal impairment [Unknown]
  - Malnutrition [Unknown]

NARRATIVE: CASE EVENT DATE: 2016
